FAERS Safety Report 7516461-5 (Version None)
Quarter: 2011Q2

REPORT INFORMATION
  Report Type: 
  Country: None (occurrence: None)
  Receive Date: 20110601
  Receipt Date: 20110517
  Transmission Date: 20111010
  Serious: Yes (Hospitalization)
  Sender: FDA-Public Use
  Company Number: A0787869A

PATIENT
  Age: 55 Year
  Sex: Male
  Weight: 130.5 kg

DRUGS (11)
  1. TOPROL-XL [Concomitant]
  2. AVANDIA [Suspect]
     Dosage: 8MG PER DAY
     Route: 048
     Dates: start: 20000615, end: 20031101
  3. INSULIN [Concomitant]
  4. ASPIRIN [Concomitant]
  5. DEMADEX [Concomitant]
  6. LOPID [Concomitant]
  7. ZESTRIL [Concomitant]
  8. DIGOXIN [Concomitant]
  9. PROCARDIA [Concomitant]
  10. ZOCOR [Concomitant]
  11. NITROGLYCERIN [Concomitant]

REACTIONS (5)
  - ISCHAEMIC CARDIOMYOPATHY [None]
  - ATRIAL FIBRILLATION [None]
  - CORONARY ARTERY DISEASE [None]
  - CARDIAC FAILURE [None]
  - CARDIAC FAILURE CONGESTIVE [None]
